FAERS Safety Report 8318998-8 (Version None)
Quarter: 2012Q2

REPORT INFORMATION
  Report Type: 
  Country: None (occurrence: None)
  Receive Date: 20120427
  Receipt Date: 20120419
  Transmission Date: 20120825
  Serious: Yes (Hospitalization)
  Sender: FDA-Public Use
  Company Number: JP-BAYER-2012-038879

PATIENT
  Age: 35 Year
  Sex: Male

DRUGS (2)
  1. NIFEDIPINE [Suspect]
     Indication: HYPERTENSION
     Dosage: 40 MG, OM
     Route: 048
     Dates: start: 20101224, end: 20110102
  2. CRESTOR [Concomitant]
     Indication: LOW DENSITY LIPOPROTEIN INCREASED
     Dosage: DAILY DOSE 2.5 MG
     Route: 048
     Dates: start: 20101224, end: 20110102

REACTIONS (1)
  - CEREBRAL INFARCTION [None]
